FAERS Safety Report 22161271 (Version 1)
Quarter: 2023Q1

REPORT INFORMATION
  Report Type: Report from Study
  Country: DE (occurrence: DE)
  Receive Date: 20230331
  Receipt Date: 20230331
  Transmission Date: 20230417
  Serious: Yes (Hospitalization, Other)
  Sender: FDA-Public Use
  Company Number: None

PATIENT
  Age: 33 Year
  Sex: Female
  Weight: 52 kg

DRUGS (59)
  1. TAVOR (LORAZEPAM) [Suspect]
     Active Substance: LORAZEPAM
     Indication: Agitation
     Route: 048
     Dates: start: 20011118, end: 20011202
  2. DIFLUCAN [Suspect]
     Active Substance: FLUCONAZOLE
     Route: 042
     Dates: start: 20011118, end: 20011120
  3. MIDAZOLAM HYDROCHLORIDE [Suspect]
     Active Substance: MIDAZOLAM HYDROCHLORIDE
     Indication: Pain
     Dosage: UNK
     Route: 042
     Dates: start: 20011113, end: 20011117
  4. SULFAMETHOXAZOLE\TRIMETHOPRIM [Suspect]
     Active Substance: SULFAMETHOXAZOLE\TRIMETHOPRIM
     Indication: Infection
     Route: 042
     Dates: start: 20011116, end: 20011120
  5. AMINO ACIDS, SOURCE UNSPECIFIED [Suspect]
     Active Substance: AMINO ACIDS, SOURCE UNSPECIFIED
     Indication: Parenteral nutrition
     Route: 042
     Dates: start: 20011124, end: 20011130
  6. HEPARIN SODIUM [Suspect]
     Active Substance: HEPARIN SODIUM
     Route: 042
     Dates: start: 20011126, end: 20011203
  7. EGG PHOSPHOLIPIDS\GLYCERIN\SOYBEAN OIL [Suspect]
     Active Substance: EGG PHOSPHOLIPIDS\GLYCERIN\SOYBEAN OIL
     Indication: Parenteral nutrition
     Dosage: DAILY, PRN.
     Route: 042
     Dates: start: 20011121, end: 20011205
  8. FOSFOMYCIN [Suspect]
     Active Substance: FOSFOMYCIN
     Indication: Infection
     Route: 042
     Dates: start: 20011130, end: 20011205
  9. NOVODIGAL (.BETA.-ACETYLDIGOXIN) [Suspect]
     Active Substance: .BETA.-ACETYLDIGOXIN
     Indication: Cardiac failure
     Route: 042
     Dates: start: 20011121, end: 20011202
  10. THEOPHYLLINE [Suspect]
     Active Substance: THEOPHYLLINE
     Indication: Bronchospasm
     Dosage: DOSE: 6 MG/HR.
     Route: 042
     Dates: start: 20011205
  11. URSODIOL [Suspect]
     Active Substance: URSODIOL
     Indication: Cholelithiasis
     Dosage: 3 DF
     Route: 048
     Dates: start: 20011123, end: 20011128
  12. CLAFORAN [Suspect]
     Active Substance: CEFOTAXIME SODIUM
     Indication: Infection
     Dosage: 6 G
     Route: 042
     Dates: start: 20011130, end: 20011201
  13. ACTRAPID [Suspect]
     Active Substance: INSULIN HUMAN
     Indication: Metabolic disorder
     Route: 042
     Dates: start: 20011124, end: 20011202
  14. LASIX [Suspect]
     Active Substance: FUROSEMIDE
     Indication: Oedema
     Route: 042
     Dates: end: 20011126
  15. ORNITHINE ASPARTATE [Suspect]
     Active Substance: ORNITHINE ASPARTATE
     Indication: Liver disorder
     Dosage: 4 DF
     Route: 048
     Dates: start: 20011124, end: 20011128
  16. FERRLECIT [Suspect]
     Active Substance: SODIUM FERRIC GLUCONATE COMPLEX
     Indication: Iron deficiency
     Route: 042
     Dates: start: 20011205, end: 20011205
  17. KETAMINE HYDROCHLORIDE [Suspect]
     Active Substance: KETAMINE HYDROCHLORIDE
     Indication: Stupor
     Route: 042
     Dates: start: 20011205, end: 20011205
  18. LACTULOSE [Suspect]
     Active Substance: LACTULOSE
     Indication: Constipation
     Dosage: 240 ML
     Route: 048
     Dates: start: 20011128, end: 20011205
  19. LAMICTAL [Suspect]
     Active Substance: LAMOTRIGINE
     Indication: Epilepsy
     Dosage: 12.5 MG
     Route: 048
     Dates: start: 20011112, end: 20011114
  20. NOVALGIN (METAMIZOLE SODIUM) [Suspect]
     Active Substance: METAMIZOLE SODIUM
     Indication: Pain
     Dosage: 2 G, AS NEEDED
     Route: 042
     Dates: start: 20011128, end: 20011202
  21. CIPROFLOXACIN HYDROCHLORIDE\HYDROCORTISONE [Suspect]
     Active Substance: CIPROFLOXACIN HYDROCHLORIDE\HYDROCORTISONE
     Indication: Infection
     Dosage: 400 MG
     Route: 042
     Dates: start: 20011121, end: 20011123
  22. NADROPARIN CALCIUM [Suspect]
     Active Substance: NADROPARIN CALCIUM
     Indication: Thrombosis prophylaxis
     Route: 058
     Dates: start: 20011117, end: 20011124
  23. RANITIDINE HYDROCHLORIDE [Suspect]
     Active Substance: RANITIDINE HYDROCHLORIDE
     Indication: Prophylaxis
     Dosage: UNK
     Route: 042
     Dates: start: 20011123, end: 20011126
  24. CLONIDINE [Suspect]
     Active Substance: CLONIDINE
     Indication: Hypertension
     Route: 042
     Dates: start: 20011205
  25. CLONAZEPAM [Suspect]
     Active Substance: CLONAZEPAM
     Indication: Epilepsy
     Dosage: 1 MG, AS NEEDED
     Dates: start: 20011112, end: 20011205
  26. AMOXICILLIN\CLAVULANATE POTASSIUM [Suspect]
     Active Substance: AMOXICILLIN\CLAVULANATE POTASSIUM
     Indication: Infection
     Dosage: 6.6 G
     Route: 042
     Dates: start: 20011121, end: 20011123
  27. SAB SIMPLEX [DIMETICONE] [Concomitant]
     Indication: Flatulence
     Dosage: 60 DROP
     Route: 048
     Dates: end: 20011120
  28. NOREPINEPHRINE HYDROCHLORIDE, (+/-)- [Concomitant]
     Active Substance: NOREPINEPHRINE HYDROCHLORIDE, (+/-)-
     Indication: Shock
     Dosage: UNK
     Route: 042
     Dates: start: 20011109, end: 20011203
  29. PROMETHAZINE HYDROCHLORIDE [Concomitant]
     Active Substance: PROMETHAZINE HYDROCHLORIDE
     Indication: Agitation
     Dosage: 150 MG
     Route: 042
     Dates: end: 20011111
  30. FERRO-FOLSAN PLUS [Concomitant]
     Indication: Iron deficiency
     Dosage: 40 DROP
     Route: 048
     Dates: end: 20011128
  31. POTASSIUM CHLORIDE [Concomitant]
     Active Substance: POTASSIUM CHLORIDE
     Indication: Metabolic disorder
     Dosage: UNK
     Route: 042
     Dates: end: 20011117
  32. CILASTATIN SODIUM\IMIPENEM [Concomitant]
     Active Substance: CILASTATIN SODIUM\IMIPENEM
     Indication: Infection
     Dosage: 1500 MG
     Route: 042
     Dates: end: 20011113
  33. FENTANYL [Concomitant]
     Active Substance: FENTANYL
     Indication: Pain
     Dosage: 1.5 MG
     Route: 042
     Dates: start: 20011120, end: 20011120
  34. VANCOMYCIN [Concomitant]
     Active Substance: VANCOMYCIN
     Indication: Infection
     Dosage: 500 MG
     Route: 042
     Dates: end: 20011113
  35. DOBUTAMINE HYDROCHLORIDE [Concomitant]
     Active Substance: DOBUTAMINE HYDROCHLORIDE
     Indication: Cardiac failure
     Dosage: 250 MG
     Route: 042
     Dates: start: 20011121, end: 20011121
  36. MULTIBIONTA C [Concomitant]
     Indication: Hypovitaminosis
     Route: 042
     Dates: start: 20011205, end: 20011205
  37. IRON [Concomitant]
     Active Substance: IRON
     Indication: Iron deficiency
     Route: 042
     Dates: end: 20011116
  38. KETAMINE [Concomitant]
     Active Substance: KETAMINE
     Indication: Pain
     Route: 042
     Dates: start: 20011113, end: 20011117
  39. ALBUMIN HUMAN [Concomitant]
     Active Substance: ALBUMIN HUMAN
     Indication: Fluid replacement
     Dosage: 200 ML 100 ML TREATMENT WAS DISCONTINUED ON 16 NOV 2001. 200 ML TREATMENT WAS FROM 21 NOV 2001 TO 24
     Route: 042
     Dates: start: 20211121
  40. ALBUMIN HUMAN [Concomitant]
     Active Substance: ALBUMIN HUMAN
     Dosage: 100 ML
     Dates: end: 20011116
  41. PANTOPRAZOLE SODIUM [Concomitant]
     Active Substance: PANTOPRAZOLE SODIUM
     Indication: Prophylaxis against gastrointestinal ulcer
     Route: 042
     Dates: end: 20011121
  42. KONAKION [Concomitant]
     Active Substance: PHYTONADIONE
     Indication: Vitamin K deficiency
     Dosage: 2 MG
     Route: 042
     Dates: end: 20011113
  43. NYSTATIN [Concomitant]
     Active Substance: NYSTATIN
     Indication: Candida infection
     Dosage: FREQUENCY: SEVERAL TIMES A DAY.
     Route: 061
     Dates: end: 20011202
  44. HEPARIN SODIUM [Concomitant]
     Active Substance: HEPARIN SODIUM
     Indication: Thrombosis prophylaxis
     Dosage: UNK
     Route: 058
     Dates: start: 20011109, end: 20011109
  45. PREDNISOLONE [Concomitant]
     Active Substance: PREDNISOLONE
     Indication: Colitis ulcerative
     Route: 042
     Dates: end: 20011205
  46. VITAMIN B1 [Concomitant]
     Active Substance: THIAMINE HYDROCHLORIDE
     Indication: Vitamin B1 deficiency
     Dosage: 100 UNK UNITS
     Route: 042
     Dates: end: 20011126
  47. DEXTROSE [Concomitant]
     Active Substance: DEXTROSE
     Indication: Fluid replacement
     Dosage: DOSE REGIMEN WAS REPORTED AS : 5% AT 2000 ML / DAY, 40% AT 500 ML / DAY AND 70 % AT 2000 ML /DAY.
     Route: 042
     Dates: end: 20011205
  48. DEXTROSE\SODIUM CHLORIDE [Concomitant]
     Active Substance: DEXTROSE\SODIUM CHLORIDE
     Indication: Fluid replacement
     Route: 042
     Dates: end: 20011130
  49. METOCLOPRAMIDE HYDROCHLORIDE [Concomitant]
     Active Substance: METOCLOPRAMIDE HYDROCHLORIDE
     Indication: Nausea
     Route: 042
     Dates: start: 20011113, end: 20011117
  50. VITINTRA [ERGOCALCIFEROL;PHYTOMENADIONE;RETINOL PALMITATE;TOCOPHEROL] [Concomitant]
     Indication: Parenteral nutrition
     Dosage: 1 DF, AS NEEDED1 AMPOULE PER DAY, PRN
     Route: 042
     Dates: start: 20011121, end: 20011205
  51. PIRITRAMIDE [Concomitant]
     Active Substance: PIRITRAMIDE
     Indication: Pain
     Dosage: 21 NOV 2001:3 MG, QDS WAS DISCONTINUED.05 DEC 2001: 3 MG, TID, PRN WAS STARTED.
     Route: 042
  52. XYLOMETAZOLINE HYDROCHLORIDE [Concomitant]
     Active Substance: XYLOMETAZOLINE HYDROCHLORIDE
     Indication: Nasopharyngitis
     Route: 045
     Dates: end: 20011130
  53. BRICANYL [Concomitant]
     Active Substance: TERBUTALINE SULFATE
     Indication: Respiratory tract congestion
     Dosage: UNK, AS NEEDED
     Route: 042
     Dates: end: 20011112
  54. VALPROIC ACID [Concomitant]
     Active Substance: VALPROIC ACID
     Indication: Epilepsy
     Route: 042
     Dates: end: 20011115
  55. NUTRIFLEX LIPID [AMINO ACIDS NOS;CARBOHYDRATES NOS;ELECTROLYTES NOS;LI [Concomitant]
     Indication: Parenteral nutrition
     Route: 042
     Dates: end: 20011123
  56. AKINETON [Concomitant]
     Active Substance: BIPERIDEN HYDROCHLORIDE
     Indication: Extrapyramidal disorder
     Route: 042
     Dates: end: 20011113
  57. METRONIDAZOLE [Concomitant]
     Active Substance: METRONIDAZOLE
     Indication: Infection
     Route: 042
     Dates: start: 20011115, end: 20011120
  58. CALCIUM [Concomitant]
     Active Substance: CALCIUM
     Indication: Calcium deficiency
     Dosage: DOSAGE REGIMEN:26 NOV 2001:10 ML / DAY OF 20% AMPOULE WAS DISCONTINUED. 05 DEC 2001: 1 AMPOULE OF+
     Route: 042
  59. ENALAPRIL MALEATE [Concomitant]
     Active Substance: ENALAPRIL MALEATE
     Indication: Cardiac failure
     Route: 048
     Dates: end: 20011202

REACTIONS (3)
  - Toxic epidermal necrolysis [Recovered/Resolved]
  - Sepsis [Recovered/Resolved]
  - Stevens-Johnson syndrome [Recovered/Resolved]

NARRATIVE: CASE EVENT DATE: 20011128
